FAERS Safety Report 7179278-X (Version None)
Quarter: 2010Q4

REPORT INFORMATION
  Report Type: 
  Country: None (occurrence: None)
  Receive Date: 20101221
  Receipt Date: 20101213
  Transmission Date: 20110411
  Serious: Yes (Death)
  Sender: FDA-Public Use
  Company Number: JP-SANOFI-AVENTIS-2010SA076233

PATIENT
  Age: 61 Year
  Sex: Female

DRUGS (1)
  1. ELPLAT [Suspect]

REACTIONS (1)
  - DEATH [None]
